FAERS Safety Report 5278014-1 (Version None)
Quarter: 2007Q1

REPORT INFORMATION
  Report Type: 
  Country: None (occurrence: None)
  Receive Date: 20070321
  Receipt Date: 20070313
  Transmission Date: 20070707
  Serious: Yes (Death)
  Sender: FDA-Public Use
  Company Number: OMPQ-NO-0703S-0146

PATIENT
  Age: 70 Year
  Sex: Male

DRUGS (1)
  1. OMNIPAQUE 140 [Suspect]
     Indication: STOMACH DISCOMFORT
     Dosage: 85 ML, SINGLE DOSE, I.V.
     Route: 042
     Dates: start: 20070313, end: 20070313

REACTIONS (3)
  - ABDOMINAL PAIN UPPER [None]
  - FALL [None]
  - POST PROCEDURAL COMPLICATION [None]
